FAERS Safety Report 7481007-7 (Version None)
Quarter: 2011Q2

REPORT INFORMATION
  Report Type: 
  Country: None (occurrence: None)
  Receive Date: 20110516
  Receipt Date: 20110510
  Transmission Date: 20111010
  Serious: Yes (Hospitalization)
  Sender: FDA-Public Use
  Company Number: BR-US-EMD SERONO, INC.-7039167

PATIENT
  Sex: Female

DRUGS (6)
  1. PROPRANOLOL [Concomitant]
  2. TIBIAL [Concomitant]
  3. REBIF [Suspect]
     Indication: RELAPSING-REMITTING MULTIPLE SCLEROSIS
     Dates: start: 20080319
  4. AZATHIOPRIN [Concomitant]
  5. CARBAMAZEPINE [Concomitant]
  6. ENALAPRIL [Concomitant]

REACTIONS (9)
  - MICTURITION URGENCY [None]
  - URINARY RETENTION [None]
  - BURNING SENSATION [None]
  - URINARY TRACT INFECTION [None]
  - BALANCE DISORDER [None]
  - ASTHENIA [None]
  - PAIN IN EXTREMITY [None]
  - MULTIPLE SCLEROSIS RELAPSE [None]
  - GAIT DISTURBANCE [None]
